FAERS Safety Report 21760792 (Version 1)
Quarter: 2022Q4

REPORT INFORMATION
  Report Type: Report from Study
  Country: IL (occurrence: IL)
  Receive Date: 20221221
  Receipt Date: 20221221
  Transmission Date: 20230113
  Serious: Yes (Hospitalization, Other)
  Sender: FDA-Public Use
  Company Number: IL-GLAXOSMITHKLINE-IL2022EME188593

PATIENT

DRUGS (1)
  1. NIRAPARIB [Suspect]
     Active Substance: NIRAPARIB
     Indication: Ovarian cancer
     Dosage: 100 MG, QD
     Route: 048
     Dates: start: 20221030, end: 20221214

REACTIONS (6)
  - Vomiting [Unknown]
  - Oligodipsia [Unknown]
  - Decreased appetite [Unknown]
  - Intestinal obstruction [Unknown]
  - Adhesion [Unknown]
  - Dysphagia [Unknown]
